FAERS Safety Report 11879012 (Version 2)
Quarter: 2016Q1

REPORT INFORMATION
  Report Type: Spontaneous
  Country: US (occurrence: US)
  Receive Date: 20151230
  Receipt Date: 20160208
  Transmission Date: 20160526
  Serious: Yes (Other)
  Sender: FDA-Public Use
  Company Number: US-PFIZER INC-2015475951

PATIENT
  Age: 49 Year
  Sex: Male

DRUGS (1)
  1. NICOTROL [Suspect]
     Active Substance: NICOTINE
     Indication: TOBACCO USER
     Dosage: 15 MG, 1-2 TIMES
     Dates: start: 2000, end: 2000

REACTIONS (4)
  - Oesophageal carcinoma [Not Recovered/Not Resolved]
  - Gastrooesophageal reflux disease [Unknown]
  - Throat cancer [Not Recovered/Not Resolved]
  - Intentional product misuse [Unknown]

NARRATIVE: CASE EVENT DATE: 2000
